FAERS Safety Report 13554848 (Version 1)
Quarter: 2017Q2

REPORT INFORMATION
  Report Type: Spontaneous
  Country: US (occurrence: US)
  Receive Date: 20170516
  Receipt Date: 20170516
  Transmission Date: 20170830
  Serious: Yes (Life-Threatening, Hospitalization)
  Sender: FDA-Public Use
  Company Number: None

PATIENT
  Age: 86 Year
  Sex: Male

DRUGS (1)
  1. SUGAMMADEX [Suspect]
     Active Substance: SUGAMMADEX
     Indication: SURGERY
     Route: 042
     Dates: start: 20170510, end: 20170510

REACTIONS (2)
  - Atrial fibrillation [None]
  - Anaphylactic reaction [None]

NARRATIVE: CASE EVENT DATE: 20170510
